FAERS Safety Report 5355183-6 (Version None)
Quarter: 2007Q2

REPORT INFORMATION
  Report Type: 
  Country: None (occurrence: None)
  Receive Date: 20070611
  Receipt Date: 20070601
  Transmission Date: 20071010
  Serious: Yes (Death)
  Sender: FDA-Public Use
  Company Number: 2007BI011983

PATIENT
  Age: 50 Year
  Sex: Female
  Weight: 97.5234 kg

DRUGS (3)
  1. AVONEX [Suspect]
     Indication: MULTIPLE SCLEROSIS
     Dosage: 30 UG;QW;IM
     Route: 030
     Dates: start: 20000101, end: 20030101
  2. AVONEX [Suspect]
     Indication: MULTIPLE SCLEROSIS
     Dosage: 30 UG;QW;IM
     Route: 030
     Dates: start: 20030101, end: 20050501
  3. AVONEX [Suspect]
     Dosage: 30 UG;QW;IM
     Route: 030
     Dates: start: 20060831, end: 20070601

REACTIONS (1)
  - MYOCARDIAL INFARCTION [None]
